FAERS Safety Report 17869206 (Version 2)
Quarter: 2020Q2

REPORT INFORMATION
  Report Type: Spontaneous
  Country: US (occurrence: US)
  Receive Date: 20200608
  Receipt Date: 20200611
  Transmission Date: 20200714
  Serious: Yes (Other)
  Sender: FDA-Public Use
  Company Number: US-ASTRAZENECA-2020SE72121

PATIENT
  Age: 19690 Day
  Sex: Female
  Weight: 56.9 kg

DRUGS (4)
  1. BYDUREON [Suspect]
     Active Substance: EXENATIDE
     Indication: BLOOD GLUCOSE FLUCTUATION
     Route: 058
     Dates: start: 202004
  2. BYDUREON [Suspect]
     Active Substance: EXENATIDE
     Indication: HAEMOGLOBIN ABNORMAL
     Route: 058
     Dates: start: 202004
  3. ALBUTEROL. [Concomitant]
     Active Substance: ALBUTEROL
     Indication: ASTHMA
     Dosage: PUFFS IN THE MORNING AND A COUPLE IN THE EVENING
     Route: 065
  4. BYDUREON [Suspect]
     Active Substance: EXENATIDE
     Indication: TYPE 2 DIABETES MELLITUS
     Route: 058
     Dates: start: 202004

REACTIONS (7)
  - Heart rate increased [Unknown]
  - Device issue [Unknown]
  - Fall [Unknown]
  - Weight decreased [Unknown]
  - Limb injury [Recovering/Resolving]
  - Injection site mass [Unknown]
  - Drug dose omission by device [Unknown]

NARRATIVE: CASE EVENT DATE: 20200531
